FAERS Safety Report 10161839 (Version 1)
Quarter: 2014Q2

REPORT INFORMATION
  Report Type: Spontaneous
  Country: US (occurrence: None)
  Receive Date: 20140507
  Receipt Date: 20140507
  Transmission Date: 20141212
  Serious: Yes (Hospitalization)
  Sender: FDA-Public Use
  Company Number: UTC-047928

PATIENT
  Age: 31 Year
  Sex: Female
  Weight: 73.93 kg

DRUGS (2)
  1. TYVASO [Suspect]
     Indication: COR PULMONALE CHRONIC
     Dosage: (72 MCG, 4 IN 1D)
     Route: 055
     Dates: start: 20131031
  2. LETAIRIS (AMBRISENTAN) [Concomitant]

REACTIONS (3)
  - Dyspnoea [None]
  - Chest pain [None]
  - Respiratory tract congestion [None]
